FAERS Safety Report 7281196-3 (Version None)
Quarter: 2011Q1

REPORT INFORMATION
  Report Type: 
  Country: None (occurrence: None)
  Receive Date: 20110208
  Receipt Date: 20101020
  Transmission Date: 20110831
  Serious: No
  Sender: FDA-Public Use
  Company Number: US-BAYER-201023170BCC

PATIENT
  Sex: Male
  Weight: 86.364 kg

DRUGS (1)
  1. ALEVE [Suspect]
     Indication: ARTHRALGIA
     Dosage: UNK
     Route: 048

REACTIONS (1)
  - ARTHRALGIA [None]
